FAERS Safety Report 8849548 (Version 3)
Quarter: 2014Q1

REPORT INFORMATION
  Report Type: Spontaneous
  Country: US (occurrence: None)
  Receive Date: 20120426
  Receipt Date: 20130107
  Transmission Date: 20141002
  Serious: No
  Sender: FDA-Public Use
  Company Number: PHEH2012US003120

PATIENT
  Age: 48 Year
  Sex: Female
  Weight: 56 kg

DRUGS (4)
  1. GILENYA [Suspect]
     Indication: RELAPSING-REMITTING MULTIPLE SCLEROSIS
     Route: 048
     Dates: start: 20120202
  2. NORTRIPTYLINE (NORTRIPTYLINE) [Concomitant]
  3. OXYCODONE (OXYCODONE) [Concomitant]
  4. CLONAZEPAM (CLONAZEPAM) [Concomitant]

REACTIONS (4)
  - Pyrexia [None]
  - Dry mouth [None]
  - Vertigo [None]
  - Hypertension [None]
